FAERS Safety Report 8411016-2 (Version None)
Quarter: 2012Q2

REPORT INFORMATION
  Report Type: 
  Country: None (occurrence: None)
  Receive Date: 20120529
  Receipt Date: 20060414
  Transmission Date: 20120825
  Serious: Yes (Hospitalization)
  Sender: FDA-Public Use
  Company Number: 15691-USA-06-1123

PATIENT
  Age: 77 Year
  Sex: Male

DRUGS (10)
  1. DITROPAN [Concomitant]
  2. FLOMAX [Concomitant]
  3. ALLOPURINOL [Concomitant]
  4. LIPITOR [Concomitant]
  5. COREG [Concomitant]
  6. TOLVAPTAN (TOLVAPTAN(V4.1)) 30MG [Suspect]
     Indication: CARDIAC FAILURE CONGESTIVE
     Dosage: 30 MG, QD, ORAL
     Route: 048
     Dates: start: 20051004
  7. POTASSIUM CHLORIDE [Concomitant]
  8. LANOXIN [Concomitant]
  9. COUMADIN [Concomitant]
  10. VALSARTAN [Concomitant]

REACTIONS (11)
  - VENOUS INSUFFICIENCY [None]
  - ASTHENIA [None]
  - CONDITION AGGRAVATED [None]
  - BLOOD UREA INCREASED [None]
  - BLOOD SODIUM INCREASED [None]
  - CARDIAC FAILURE CONGESTIVE [None]
  - VENTRICULAR EXTRASYSTOLES [None]
  - HAEMOGLOBIN DECREASED [None]
  - ATRIAL FIBRILLATION [None]
  - HAEMATOCRIT DECREASED [None]
  - ESCHERICHIA URINARY TRACT INFECTION [None]
